FAERS Safety Report 6257321-X (Version None)
Quarter: 2009Q3

REPORT INFORMATION
  Report Type: 
  Country: None (occurrence: None)
  Receive Date: 20090706
  Receipt Date: 20090625
  Transmission Date: 20100115
  Serious: Yes (Hospitalization)
  Sender: FDA-Public Use
  Company Number: NZ-JNJFOC-20090604469

PATIENT
  Sex: Female

DRUGS (21)
  1. GOLIMUMAB [Suspect]
     Route: 042
  2. GOLIMUMAB [Suspect]
     Indication: RHEUMATOID ARTHRITIS
     Route: 042
  3. METHOTREXATE [Suspect]
     Route: 048
  4. METHOTREXATE [Suspect]
     Indication: RHEUMATOID ARTHRITIS
     Route: 048
  5. PLACEBO [Suspect]
     Indication: RHEUMATOID ARTHRITIS
     Route: 048
  6. LORATADINE [Concomitant]
     Indication: PROPHYLAXIS
     Route: 048
  7. METHOTREXATE [Concomitant]
     Route: 048
  8. ACETAMINOPHEN W/ CODEINE [Concomitant]
     Route: 048
  9. TRAMADOL [Concomitant]
     Indication: RHEUMATOID ARTHRITIS
     Route: 048
  10. KENACORT [Concomitant]
     Indication: RHEUMATOID ARTHRITIS
     Route: 014
  11. XYLOCAINE [Concomitant]
     Indication: RHEUMATOID ARTHRITIS
     Route: 014
  12. ACCUPRIL [Concomitant]
     Route: 048
  13. ACCURETIC [Concomitant]
     Route: 048
  14. AMOXICILLIN [Concomitant]
     Route: 048
  15. AUGMENTIN [Concomitant]
     Route: 048
  16. COMBIVENT [Concomitant]
  17. DEPO-MEDROL [Concomitant]
     Indication: RHEUMATOID ARTHRITIS
     Route: 014
  18. FLOXACILLIN SODIUM [Concomitant]
     Indication: RHEUMATOID ARTHRITIS
     Route: 048
  19. FOLIC ACID [Concomitant]
     Indication: RHEUMATOID ARTHRITIS
     Route: 048
  20. INDOMETHACIN [Concomitant]
     Indication: RHEUMATOID ARTHRITIS
     Route: 048
  21. INFLUENZA VACCINE [Concomitant]
     Indication: PROPHYLAXIS
     Route: 030

REACTIONS (1)
  - ARTHRITIS INFECTIVE [None]
